FAERS Safety Report 7592231-7 (Version None)
Quarter: 2011Q3

REPORT INFORMATION
  Report Type: 
  Country: None (occurrence: None)
  Receive Date: 20110706
  Receipt Date: 20110624
  Transmission Date: 20111222
  Serious: Yes (Other)
  Sender: FDA-Public Use
  Company Number: US-ELI_LILLY_AND_COMPANY-US201103005501

PATIENT
  Sex: Female

DRUGS (4)
  1. FORTEO [Suspect]
     Dosage: 20 UG, QD
     Route: 065
  2. FORTEO [Suspect]
     Dosage: 20 UG, QD
     Route: 065
     Dates: start: 20110503
  3. FORTEO [Suspect]
     Dosage: 20 UG, QD
     Route: 065
  4. FORTEO [Suspect]
     Indication: OSTEOPOROSIS
     Dosage: 20 UG, QD
     Route: 065
     Dates: start: 20110308, end: 20110325

REACTIONS (25)
  - INJECTION SITE PRURITUS [None]
  - ERYTHEMA [None]
  - HYPERSENSITIVITY [None]
  - INJECTION SITE HAEMATOMA [None]
  - SCAB [None]
  - INJECTION SITE ERYTHEMA [None]
  - ARTHROPOD BITE [None]
  - SCRATCH [None]
  - SKIN SWELLING [None]
  - FEAR [None]
  - PAIN [None]
  - RASH GENERALISED [None]
  - PRURITUS [None]
  - INJECTION SITE PAIN [None]
  - PYODERMA GANGRENOSUM [None]
  - VASCULITIS [None]
  - LOWER EXTREMITY MASS [None]
  - CONTUSION [None]
  - HYPOAESTHESIA [None]
  - ABDOMINAL PAIN [None]
  - NAUSEA [None]
  - SKIN DISCOLOURATION [None]
  - LIMB DISCOMFORT [None]
  - SKIN INJURY [None]
  - DRUG DOSE OMISSION [None]
